FAERS Safety Report 8909884 (Version 1)
Quarter: 2012Q4

REPORT INFORMATION
  Report Type: 
  Country: US (occurrence: US)
  Receive Date: 20121115
  Receipt Date: 20121115
  Transmission Date: 20130627
  Serious: Yes (Other)
  Sender: FDA-Public Use
  Company Number: US-PFIZER INC-2012284137

PATIENT
  Age: 80 Year
  Sex: Female
  Weight: 68.03 kg

DRUGS (5)
  1. LIPITOR [Suspect]
     Indication: HIGH CHOLESTEROL
     Dosage: 20 mg, daily in afternoon
  2. NEURONTIN [Suspect]
     Indication: NEUROPATHY
     Dosage: UNK, daily at night
  3. DETROL LA [Suspect]
     Indication: BREAST CANCER FEMALE
     Dosage: 4 mg, daily
  4. DETROL LA [Suspect]
     Indication: URINARY BLADDER CARCINOMA
  5. METFORMIN [Concomitant]
     Indication: DIABETES
     Dosage: 1000 mg, daily

REACTIONS (1)
  - Arthropathy [Unknown]
